FAERS Safety Report 12846766 (Version 3)
Quarter: 2017Q1

REPORT INFORMATION
  Report Type: Spontaneous
  Country: US (occurrence: US)
  Receive Date: 20161014
  Receipt Date: 20170104
  Transmission Date: 20170428
  Serious: Yes (Other)
  Sender: FDA-Public Use
  Company Number: US-PFIZER INC-2016478681

PATIENT
  Age: 57 Year
  Sex: Male
  Weight: 92.97 kg

DRUGS (12)
  1. INFLUENZA VACCIN [Concomitant]
     Active Substance: INFLUENZA VIRUS VACCINE
     Dosage: 0.5 ML, UNK
     Route: 030
  2. LYRICA [Suspect]
     Active Substance: PREGABALIN
     Indication: NEUROPATHY PERIPHERAL
     Dosage: 100 MG, 3X/DAY
     Route: 048
     Dates: end: 201611
  3. ENALAPRIL MALEATE. [Concomitant]
     Active Substance: ENALAPRIL MALEATE
     Dosage: 10 MG, DAILY
     Route: 048
  4. METFORMIN HCL [Concomitant]
     Active Substance: METFORMIN HYDROCHLORIDE
     Dosage: 1500 MG, DAILY  (TAKE 1 TABLET EVERY MORNING AND TAKE 2 TABLETS EVERY NIGHT AT BED
     Route: 048
  5. NORCO [Concomitant]
     Active Substance: ACETAMINOPHEN\HYDROCODONE BITARTRATE
     Indication: PAIN
     Dosage: 1 DF, 4X/DAY
     Dates: start: 2015
  6. HYDROCODONE/ACETAMINOPHEN [Concomitant]
     Active Substance: ACETAMINOPHEN\HYDROCODONE
     Indication: PAIN
     Dosage: 1 DF, AS NEEDED (HYDROCODONE-10 MG,ACETAMINOPHEN-325 MG) EVERY 6 (SIX) HOURS)
     Route: 048
  7. TADALAFIL [Concomitant]
     Active Substance: TADALAFIL
     Indication: ERECTILE DYSFUNCTION
     Dosage: 20 MG, UNK (TAKE 1 TABLET 30 MIN-4 HOURS PRIOR TO INTERCOURSE, NO MORE THAN 2 IN A 24 HOUR PERIOD)
  8. TADALAFIL [Concomitant]
     Active Substance: TADALAFIL
     Dosage: 20 MG, DAILY AS NEEDED
     Route: 048
  9. LYRICA [Suspect]
     Active Substance: PREGABALIN
     Indication: NERVE INJURY
  10. PRAVASTATIN SODIUM. [Concomitant]
     Active Substance: PRAVASTATIN SODIUM
     Dosage: 40 MG, DAILY (TAKE 1 TABLET AT BEDTIME)
     Route: 048
  11. TRAMADOL HCL [Concomitant]
     Active Substance: TRAMADOL HYDROCHLORIDE
     Dosage: 50 MG, AS NEEDED (TK 1 T PO QID PRN)
     Route: 048
  12. NORCO [Concomitant]
     Active Substance: ACETAMINOPHEN\HYDROCODONE BITARTRATE
     Dosage: 1 DF, 4X/DAY

REACTIONS (4)
  - Musculoskeletal pain [Unknown]
  - Burning sensation [Unknown]
  - Pain [Not Recovered/Not Resolved]
  - Abasia [Not Recovered/Not Resolved]

NARRATIVE: CASE EVENT DATE: 201611
